FAERS Safety Report 5529512-4 (Version None)
Quarter: 2007Q4

REPORT INFORMATION
  Report Type: 
  Country: None (occurrence: None)
  Receive Date: 20071129
  Receipt Date: 20071120
  Transmission Date: 20080405
  Serious: Yes (Hospitalization)
  Sender: FDA-Public Use
  Company Number: US-ELI_LILLY_AND_COMPANY-US200711002682

PATIENT
  Sex: Female
  Weight: 90.703 kg

DRUGS (6)
  1. BYETTA [Suspect]
     Dosage: 5 UG, 2/D
     Route: 058
     Dates: start: 20070901, end: 20071001
  2. BYETTA [Suspect]
     Dosage: 10 UG, 2/D
     Route: 058
     Dates: start: 20071001, end: 20071027
  3. BYETTA [Suspect]
     Dosage: UNK, UNKNOWN
     Route: 058
     Dates: start: 20071101
  4. METFORMIN HCL [Concomitant]
     Dosage: 500 MG, EACH MORNING
     Dates: start: 20041001
  5. METFORMIN HCL [Concomitant]
     Dosage: 1000 MG, EACH EVENING
     Dates: start: 20041001
  6. ASPIRIN [Concomitant]
     Dosage: 81 MG, DAILY (1/D)
     Dates: start: 20041001

REACTIONS (4)
  - COLITIS ISCHAEMIC [None]
  - NAUSEA [None]
  - VOMITING [None]
  - WEIGHT DECREASED [None]
